FAERS Safety Report 7761570-9 (Version None)
Quarter: 2011Q3

REPORT INFORMATION
  Report Type: 
  Country: None (occurrence: None)
  Receive Date: 20110920
  Receipt Date: 20110907
  Transmission Date: 20111222
  Serious: Yes (Hospitalization)
  Sender: FDA-Public Use
  Company Number: DE-CELGENEUS-062-21880-11072657

PATIENT
  Age: 56 Year
  Sex: Male

DRUGS (9)
  1. REVLIMID [Suspect]
     Indication: MULTIPLE MYELOMA
     Dosage: 25 MILLIGRAM
     Route: 048
     Dates: end: 20110123
  2. MELPHALAN HYDROCHLORIDE [Suspect]
     Indication: MULTIPLE MYELOMA
     Route: 065
     Dates: start: 20110521, end: 20110522
  3. MORPHINE SULFATE [Concomitant]
     Indication: PAIN
     Dosage: 80 MILLIGRAM
     Route: 048
  4. RAMIPRIL [Concomitant]
     Indication: HYPERTENSION
     Dosage: 2.5 MILLIGRAM
     Route: 048
  5. LYRICA [Concomitant]
     Indication: PAIN
     Dosage: 10 MILLIGRAM
     Route: 048
  6. BISPHOSPHONATES [Concomitant]
     Route: 065
  7. COTRIM DS [Concomitant]
     Indication: INFECTION
     Route: 048
  8. DEXAMETHASONE [Suspect]
     Indication: MULTIPLE MYELOMA
     Route: 065
     Dates: end: 20110122
  9. ADRIAMYCIN PFS [Suspect]
     Indication: MULTIPLE MYELOMA
     Route: 065
     Dates: end: 20110106

REACTIONS (1)
  - LUNG INFECTION [None]
